FAERS Safety Report 6704634-0 (Version None)
Quarter: 2010Q2

REPORT INFORMATION
  Report Type: 
  Country: None (occurrence: None)
  Receive Date: 20100430
  Receipt Date: 20100421
  Transmission Date: 20101027
  Serious: Yes (Death, Life-Threatening)
  Sender: FDA-Public Use
  Company Number: ES-AMGEN-US385490

PATIENT
  Age: 52 Year
  Sex: Female

DRUGS (3)
  1. ENBREL [Suspect]
     Indication: PSORIASIS
     Route: 058
     Dates: start: 20090701, end: 20091123
  2. METHOTREXATE [Suspect]
     Indication: PSORIASIS
     Route: 048
     Dates: start: 20090225, end: 20091123
  3. RAPTIVA [Suspect]
     Indication: PSORIASIS
     Route: 058
     Dates: start: 20051208, end: 20090225

REACTIONS (4)
  - GASTRIC CANCER STAGE IV [None]
  - LYMPHANGIOSIS CARCINOMATOSA [None]
  - RESPIRATORY FAILURE [None]
  - RESPIRATORY TRACT INFECTION [None]
